FAERS Safety Report 8462533-0 (Version None)
Quarter: 2012Q2

REPORT INFORMATION
  Report Type: 
  Country: None (occurrence: None)
  Receive Date: 20120619
  Receipt Date: 20120619
  Transmission Date: 20120825
  Serious: Yes (Other)
  Sender: FDA-Public Use
  Company Number: None

PATIENT
  Sex: Male

DRUGS (1)
  1. TRUVADA [Suspect]
     Indication: HIV INFECTION
     Dosage: 1 A DAY PO
     Route: 048
     Dates: start: 20120510, end: 20120615

REACTIONS (22)
  - COUGH [None]
  - ARTHRALGIA [None]
  - MANIA [None]
  - INSOMNIA [None]
  - NAUSEA [None]
  - HYPERHIDROSIS [None]
  - FATIGUE [None]
  - VOMITING [None]
  - MOOD ALTERED [None]
  - HEADACHE [None]
  - DYSPNOEA [None]
  - HEART RATE IRREGULAR [None]
  - CHILLS [None]
  - WEIGHT DECREASED [None]
  - LACTIC ACIDOSIS [None]
  - HEART RATE INCREASED [None]
  - ASTHENIA [None]
  - DIARRHOEA [None]
  - DIZZINESS [None]
  - DECREASED APPETITE [None]
  - FRONTAL SINUS OPERATION [None]
  - ABNORMAL DREAMS [None]
